FAERS Safety Report 23099754 (Version 1)
Quarter: 2023Q4

REPORT INFORMATION
  Report Type: Spontaneous
  Country: US (occurrence: None)
  Receive Date: 20231023
  Receipt Date: 20231023
  Transmission Date: 20240110
  Serious: Yes (Other)
  Sender: FDA-Public Use
  Company Number: None

PATIENT
  Age: 56 Year
  Sex: Female

DRUGS (1)
  1. .DELTA.8-TETRAHYDROCANNABINOL\HERBALS [Suspect]
     Active Substance: .DELTA.8-TETRAHYDROCANNABINOL\HERBALS
     Dosage: OTHER QUANTITY : 1 EDIBLE;?
     Route: 048

REACTIONS (5)
  - Hallucination [None]
  - Dizziness [None]
  - Chills [None]
  - Dry mouth [None]
  - Substance use [None]

NARRATIVE: CASE EVENT DATE: 20231022
